FAERS Safety Report 6733604-1 (Version None)
Quarter: 2010Q2

REPORT INFORMATION
  Report Type: 
  Country: None (occurrence: None)
  Receive Date: 20100520
  Receipt Date: 20100511
  Transmission Date: 20101027
  Serious: Yes (Hospitalization)
  Sender: FDA-Public Use
  Company Number: US-CELGENEUS-163-21880-10050968

PATIENT
  Sex: Male

DRUGS (5)
  1. REVLIMID [Suspect]
     Indication: MULTIPLE MYELOMA
     Route: 048
     Dates: start: 20100101, end: 20100508
  2. REVLIMID [Suspect]
     Route: 048
     Dates: start: 20070501
  3. REVLIMID [Suspect]
     Route: 048
     Dates: start: 20070901
  4. REVLIMID [Suspect]
     Dosage: 10-15MG
     Route: 048
     Dates: start: 20080201
  5. REVLIMID [Suspect]
     Route: 048
     Dates: start: 20100509

REACTIONS (6)
  - CHOLECYSTITIS [None]
  - DIABETIC NEUROPATHY [None]
  - FAECES DISCOLOURED [None]
  - GASTROINTESTINAL INFECTION [None]
  - PLATELET COUNT DECREASED [None]
  - RENAL PAIN [None]
